FAERS Safety Report 14161650 (Version 1)
Quarter: 2017Q4

REPORT INFORMATION
  Report Type: Spontaneous
  Country: US (occurrence: US)
  Receive Date: 20171105
  Receipt Date: 20171105
  Transmission Date: 20180321
  Serious: Yes (Other)
  Sender: FDA-Public Use
  Company Number: None

PATIENT
  Age: 55 Year
  Sex: Female
  Weight: 94.5 kg

DRUGS (5)
  1. CITALOPRAM [Concomitant]
     Active Substance: CITALOPRAM HYDROBROMIDE
  2. CLARITIN [Concomitant]
     Active Substance: LORATADINE
  3. GABAPENTIN. [Suspect]
     Active Substance: GABAPENTIN
     Indication: NEUROPATHY PERIPHERAL
     Dosage: ORAL 200MG, 100MG, 100M?
     Route: 048
     Dates: start: 20171001
  4. ASPIRIN. [Concomitant]
     Active Substance: ASPIRIN
  5. LEVOTHYROXINE. [Concomitant]
     Active Substance: LEVOTHYROXINE

REACTIONS (2)
  - Loss of personal independence in daily activities [None]
  - Depression [None]

NARRATIVE: CASE EVENT DATE: 20171021
